FAERS Safety Report 13192147 (Version 2)
Quarter: 2017Q2

REPORT INFORMATION
  Report Type: Spontaneous
  Country: US (occurrence: US)
  Receive Date: 20170207
  Receipt Date: 20170509
  Transmission Date: 20170830
  Serious: No
  Sender: FDA-Public Use
  Company Number: US-009507513-1702USA002423

PATIENT
  Sex: Female

DRUGS (1)
  1. NEXPLANON [Suspect]
     Active Substance: ETONOGESTREL
     Indication: CONTRACEPTION
     Dosage: 1 ROD / EVERY THREE YEARS
     Route: 059
     Dates: start: 20151026, end: 2017

REACTIONS (2)
  - No adverse event [Unknown]
  - Device kink [Recovered/Resolved]
